FAERS Safety Report 8326630-2 (Version None)
Quarter: 2012Q2

REPORT INFORMATION
  Report Type: 
  Country: None (occurrence: None)
  Receive Date: 20120501
  Receipt Date: 20090909
  Transmission Date: 20120825
  Serious: No
  Sender: FDA-Public Use
  Company Number: US-TEVA-2009010274

PATIENT
  Sex: Female
  Weight: 77.18 kg

DRUGS (3)
  1. ATENOLOL [Concomitant]
     Dates: start: 20080101
  2. LISINOPRIL [Concomitant]
     Dates: start: 20080101
  3. NUVIGIL [Suspect]
     Indication: SLEEP APNOEA SYNDROME
     Dosage: 150 MILLIGRAM;
     Route: 048
     Dates: start: 20090908

REACTIONS (3)
  - DRUG INEFFECTIVE [None]
  - RESTLESSNESS [None]
  - INITIAL INSOMNIA [None]
